FAERS Safety Report 9261555 (Version 1)
Quarter: 2013Q2

REPORT INFORMATION
  Report Type: Spontaneous
  Country: GB (occurrence: GB)
  Receive Date: 20130429
  Receipt Date: 20130429
  Transmission Date: 20140414
  Serious: Yes (Other)
  Sender: FDA-Public Use
  Company Number: PHHY2013GB039548

PATIENT
  Age: 58 Year
  Sex: Female
  Weight: 108 kg

DRUGS (6)
  1. CO-CODAMOL [Suspect]
     Indication: ANALGESIC THERAPY
     Dosage: 2 DF, TID
     Route: 048
     Dates: start: 20130303, end: 20130307
  2. PIOGLITAZONE [Concomitant]
     Indication: TYPE 2 DIABETES MELLITUS
     Dosage: 15 MG, TID
     Route: 048
     Dates: start: 20110308
  3. METFORMIN [Concomitant]
     Indication: TYPE 2 DIABETES MELLITUS
     Dosage: 300 MG, BID
     Route: 048
     Dates: start: 20050616
  4. LISINOPRIL [Concomitant]
     Indication: HYPERTENSION
     Dosage: 8 MG, QD
     Route: 048
     Dates: start: 20060322
  5. MELOXICAM [Concomitant]
     Indication: OSTEOARTHRITIS
     Route: 048
     Dates: start: 20050127
  6. OMEPRAZOLE [Concomitant]
     Indication: PROPHYLAXIS
     Dosage: 10 MG, QD
     Route: 048
     Dates: start: 20080502

REACTIONS (3)
  - Local swelling [Recovered/Resolved]
  - Joint swelling [Recovered/Resolved]
  - Abdominal distension [Recovered/Resolved]
